FAERS Safety Report 6035145-6 (Version None)
Quarter: 2009Q1

REPORT INFORMATION
  Report Type: 
  Country: None (occurrence: None)
  Receive Date: 20090112
  Receipt Date: 20090104
  Transmission Date: 20090719
  Serious: No
  Sender: FDA-Public Use
  Company Number: US-B.I. PHARMACEUTICALS,INC./RIDGEFIELD-2009-BP-00083BP

PATIENT
  Sex: Male

DRUGS (9)
  1. SPIRIVA [Suspect]
     Indication: CHRONIC OBSTRUCTIVE PULMONARY DISEASE
     Dosage: 18MCG
     Route: 055
  2. HYDROCHLOROTHIAZIDE [Concomitant]
     Indication: BLOOD PRESSURE INCREASED
     Dosage: 37.5NR
  3. ALBUTEROL [Concomitant]
     Indication: ASTHMA
     Dosage: 2PUF
     Route: 055
  4. METFORMIN HCL [Concomitant]
     Indication: DIABETES MELLITUS
     Dosage: 500MG
  5. SIMVASTATIN [Concomitant]
     Indication: BLOOD CHOLESTEROL INCREASED
     Dosage: 80MG
  6. MELALOMIN [Concomitant]
     Dosage: 800MG
  7. PULMICORT [Concomitant]
     Indication: ASTHMA
     Dosage: 25MG
  8. HYDROXYZINE [Concomitant]
     Indication: MULTIPLE ALLERGIES
     Dosage: 25MG
  9. TYLENOL (CAPLET) [Concomitant]
     Indication: PAIN
     Dosage: 500MG

REACTIONS (1)
  - MYALGIA [None]
